FAERS Safety Report 14186322 (Version 2)
Quarter: 2018Q2

REPORT INFORMATION
  Report Type: Spontaneous
  Country: US (occurrence: US)
  Receive Date: 20171114
  Receipt Date: 20180525
  Transmission Date: 20180711
  Serious: Yes (Other)
  Sender: FDA-Public Use
  Company Number: US-PFIZER INC-2017487991

PATIENT
  Age: 29 Year
  Sex: Female

DRUGS (20)
  1. NIFEDIPINE. [Concomitant]
     Active Substance: NIFEDIPINE
  2. POTASSIUM CHLORIDE. [Concomitant]
     Active Substance: POTASSIUM CHLORIDE
  3. ACETAZOLAMIDE. [Concomitant]
     Active Substance: ACETAZOLAMIDE
  4. ACETAMINOPHEN. [Concomitant]
     Active Substance: ACETAMINOPHEN
  5. NEBIVOLOL HYDROCHLORIDE [Concomitant]
     Active Substance: NEBIVOLOL HYDROCHLORIDE
  6. PREPOPIK [Concomitant]
     Active Substance: ANHYDROUS CITRIC ACID\MAGNESIUM OXIDE\SODIUM PICOSULFATE
  7. KLONOPIN [Concomitant]
     Active Substance: CLONAZEPAM
  8. PROZAC [Concomitant]
     Active Substance: FLUOXETINE HYDROCHLORIDE
  9. XANAX [Concomitant]
     Active Substance: ALPRAZOLAM
  10. DEPO-PROVERA [Suspect]
     Active Substance: MEDROXYPROGESTERONE ACETATE
     Indication: CONTRACEPTION
     Dosage: UNK
  11. NORCO [Concomitant]
     Active Substance: ACETAMINOPHEN\HYDROCODONE BITARTRATE
  12. MAKENA [Concomitant]
     Active Substance: HYDROXYPROGESTERONE CAPROATE
  13. PRENATAL /00231801/ [Concomitant]
     Active Substance: VITAMINS
  14. ASPIRIN /00002701/ [Concomitant]
     Active Substance: ASPIRIN
  15. ELIQUIS [Concomitant]
     Active Substance: APIXABAN
  16. BYSTOLIC [Concomitant]
     Active Substance: NEBIVOLOL HYDROCHLORIDE
  17. MULTIVITAMIN + MINERAL [Concomitant]
  18. BACLOFEN. [Concomitant]
     Active Substance: BACLOFEN
  19. OMEPRAZOLE. [Concomitant]
     Active Substance: OMEPRAZOLE
  20. ZOLOFT [Concomitant]
     Active Substance: SERTRALINE HYDROCHLORIDE

REACTIONS (1)
  - Idiopathic intracranial hypertension [Not Recovered/Not Resolved]

NARRATIVE: CASE EVENT DATE: 20151115
